FAERS Safety Report 15960963 (Version 3)
Quarter: 2019Q3

REPORT INFORMATION
  Report Type: Spontaneous
  Country: US (occurrence: US)
  Receive Date: 20190214
  Receipt Date: 20190816
  Transmission Date: 20191004
  Serious: No
  Sender: FDA-Public Use
  Company Number: US-PFIZER INC-2019065094

PATIENT
  Age: 13 Year
  Sex: Male

DRUGS (2)
  1. GENOTROPIN [Suspect]
     Active Substance: SOMATROPIN
     Dosage: 1.8 MG, DAILY
     Dates: start: 201209
  2. GENOTROPIN [Suspect]
     Active Substance: SOMATROPIN
     Indication: GROWTH HORMONE DEFICIENCY
     Dosage: 1.5 MG, DAILY

REACTIONS (14)
  - Thyroxine free increased [Unknown]
  - Gait disturbance [Unknown]
  - Plasma cells decreased [Unknown]
  - Blood 25-hydroxycholecalciferol decreased [Unknown]
  - Photophobia [Unknown]
  - Blood glucose increased [Unknown]
  - Poor quality device used [Unknown]
  - Myalgia [Unknown]
  - Blood thyroid stimulating hormone decreased [Unknown]
  - Constipation [Unknown]
  - Blood corticotrophin decreased [Unknown]
  - Headache [Not Recovered/Not Resolved]
  - Arthralgia [Unknown]
  - Blood urea nitrogen/creatinine ratio decreased [Unknown]

NARRATIVE: CASE EVENT DATE: 20171228
